FAERS Safety Report 5750955-8 (Version None)
Quarter: 2008Q2

REPORT INFORMATION
  Report Type: 
  Country: None (occurrence: None)
  Receive Date: 20080528
  Receipt Date: 20080520
  Transmission Date: 20081010
  Serious: Yes (Life-Threatening)
  Sender: FDA-Public Use
  Company Number: US-MERCK-0804USA04473

PATIENT
  Age: 16 Year
  Sex: Male
  Weight: 91 kg

DRUGS (2)
  1. SINGULAIR [Suspect]
     Indication: HYPERSENSITIVITY
     Route: 048
     Dates: start: 20070725, end: 20070801
  2. ZOLOFT [Concomitant]
     Route: 065

REACTIONS (3)
  - DEPRESSION [None]
  - LACERATION [None]
  - SELF-INJURIOUS IDEATION [None]
